FAERS Safety Report 14771523 (Version 1)
Quarter: 2018Q2

REPORT INFORMATION
  Report Type: Spontaneous
  Country: US (occurrence: US)
  Receive Date: 20180417
  Receipt Date: 20180417
  Transmission Date: 20180711
  Serious: No
  Sender: FDA-Public Use
  Company Number: US-ALLERGAN-1730991US

PATIENT
  Age: 67 Year
  Sex: Female

DRUGS (5)
  1. LATANAPROST/TIMOLOL [Concomitant]
     Active Substance: LATANOPROST\TIMOLOL
     Indication: GLAUCOMA
     Dosage: 2 GTT, QHS
     Route: 047
     Dates: start: 2014
  2. LATISSE [Suspect]
     Active Substance: BIMATOPROST
     Indication: HAIR GROWTH ABNORMAL
  3. FINACEA [Concomitant]
     Active Substance: AZELAIC ACID
     Indication: ROSACEA
     Dosage: UNK, PRN
     Route: 061
  4. ACZONE [Concomitant]
     Active Substance: DAPSONE
     Indication: ROSACEA
     Dosage: UNK, PRN
     Route: 061
     Dates: start: 201705
  5. LATISSE [Suspect]
     Active Substance: BIMATOPROST
     Indication: GROWTH OF EYELASHES
     Dosage: 2 GTT, QHS
     Route: 061
     Dates: start: 201706

REACTIONS (7)
  - Lip swelling [Recovering/Resolving]
  - Lip erythema [Recovering/Resolving]
  - Lip pruritus [Recovering/Resolving]
  - Product administered at inappropriate site [Unknown]
  - Rash [Recovered/Resolved]
  - Eyelid rash [Recovered/Resolved]
  - Lip exfoliation [Recovering/Resolving]

NARRATIVE: CASE EVENT DATE: 201706
